FAERS Safety Report 14956406 (Version 3)
Quarter: 2018Q2

REPORT INFORMATION
  Report Type: Spontaneous
  Country: US (occurrence: US)
  Receive Date: 20180531
  Receipt Date: 20180619
  Transmission Date: 20180711
  Serious: No
  Sender: FDA-Public Use
  Company Number: US-PFIZER INC-2018220740

PATIENT
  Age: 73 Year
  Sex: Female

DRUGS (2)
  1. IBRANCE [Suspect]
     Active Substance: PALBOCICLIB
     Dosage: UNK (125 FOR 3 WEEKS)
  2. IBRANCE [Suspect]
     Active Substance: PALBOCICLIB
     Dosage: UNK (75 FOR 3 WEEKS)

REACTIONS (4)
  - Memory impairment [Unknown]
  - Full blood count decreased [Unknown]
  - Fatigue [Unknown]
  - Feeling abnormal [Unknown]
